FAERS Safety Report 7623530-8 (Version None)
Quarter: 2011Q3

REPORT INFORMATION
  Report Type: 
  Country: None (occurrence: None)
  Receive Date: 20110720
  Receipt Date: 20110705
  Transmission Date: 20111222
  Serious: Yes (Other)
  Sender: FDA-Public Use
  Company Number: PL-SANOFI-AVENTIS-2011SA044355

PATIENT
  Age: 70 Year
  Sex: Female
  Weight: 75 kg

DRUGS (6)
  1. RAMIPRIL [Concomitant]
     Route: 065
  2. ACENOCOUMAROL [Concomitant]
     Route: 065
  3. BISOPROLOL [Concomitant]
     Route: 065
  4. THIAZIDES [Concomitant]
     Route: 065
     Dates: end: 20110613
  5. DRONEDARONE HCL [Suspect]
     Indication: ATRIAL FIBRILLATION
     Route: 048
     Dates: start: 20110210
  6. SIMVASTATIN [Concomitant]
     Route: 065

REACTIONS (1)
  - CARDIAC FAILURE [None]
